FAERS Safety Report 24566748 (Version 1)
Quarter: 2024Q4

REPORT INFORMATION
  Report Type: Spontaneous
  Country: US (occurrence: US)
  Receive Date: 20241030
  Receipt Date: 20241030
  Transmission Date: 20250114
  Serious: Yes (Death, Other)
  Sender: ELI LILLY AND COMPANY
  Company Number: US-ELI_LILLY_AND_COMPANY-US202410019510

PATIENT
  Age: 72 Year
  Sex: Female

DRUGS (1)
  1. TRULICITY [Suspect]
     Active Substance: DULAGLUTIDE
     Indication: Product used for unknown indication
     Dosage: UNK UNK, UNKNOWN
     Route: 065
     Dates: start: 201912

REACTIONS (10)
  - Death [Fatal]
  - Muscle spasms [Unknown]
  - Septic shock [Unknown]
  - Emotional distress [Unknown]
  - Impaired gastric emptying [Unknown]
  - Intestinal ischaemia [Unknown]
  - Cholecystitis [Unknown]
  - Cholelithiasis [Unknown]
  - Abdominal pain [Unknown]
  - Constipation [Unknown]
